FAERS Safety Report 4525931-3 (Version None)
Quarter: 2004Q4

REPORT INFORMATION
  Report Type: 
  Country: None (occurrence: None)
  Receive Date: 20041124
  Receipt Date: 20040625
  Transmission Date: 20050328
  Serious: Yes (Other)
  Sender: FDA-Public Use
  Company Number: 2004026809

PATIENT
  Age: 67 Year
  Sex: Female
  Weight: 73.4827 kg

DRUGS (5)
  1. TIKOSYN [Suspect]
     Indication: ATRIAL FIBRILLATION
     Dosage: 500 MCG (2 IN 1 D), ORAL
     Route: 048
     Dates: start: 20030201, end: 20040401
  2. VALSARTAN (VALSARTAN) [Concomitant]
  3. LANSOPRAZOLE [Concomitant]
  4. MONTELUKAST (MONTELUKAST) [Concomitant]
  5. LORATADINE [Concomitant]

REACTIONS (4)
  - ARRHYTHMIA [None]
  - ATRIAL FIBRILLATION [None]
  - BRADYCARDIA [None]
  - TACHYCARDIA [None]
